FAERS Safety Report 9391478 (Version 1)
Quarter: 2013Q3

REPORT INFORMATION
  Report Type: Spontaneous
  Country: US (occurrence: None)
  Receive Date: 20130705
  Receipt Date: 20130705
  Transmission Date: 20140515
  Serious: Yes (Other)
  Sender: FDA-Public Use
  Company Number: LMI-2013-00259

PATIENT
  Sex: 0

DRUGS (1)
  1. DEFINITY [Suspect]
     Indication: ECHOCARDIOGRAM
     Dosage: 1 VIAL OF DEFINITY DILUTED IN 8.3 ML NORMAL SALINE (1.5 ML)
     Route: 040
     Dates: start: 20130620, end: 20130620

REACTIONS (1)
  - Unresponsive to stimuli [None]
